FAERS Safety Report 19131844 (Version 2)
Quarter: 2021Q2

REPORT INFORMATION
  Report Type: Spontaneous
  Country: CA (occurrence: CA)
  Receive Date: 20210413
  Receipt Date: 20210510
  Transmission Date: 20210717
  Serious: Yes (Death, Life-Threatening, Hospitalization, Other)
  Sender: FDA-Public Use
  Company Number: CA-PFIZER INC-2021372672

PATIENT
  Age: 76 Year
  Sex: Female

DRUGS (1)
  1. SUTENT [Suspect]
     Active Substance: SUNITINIB MALATE
     Dosage: 50 MG, 1X/DAY 28 DAYS ON, 2 WEEKS OFF
     Route: 048
     Dates: start: 20200323

REACTIONS (7)
  - Second primary malignancy [Fatal]
  - Gastrointestinal stromal tumour [Fatal]
  - Neoplasm progression [Fatal]
  - Hepatic failure [Fatal]
  - Hepatorenal syndrome [Unknown]
  - Metabolic acidosis [Unknown]
  - Hypotension [Unknown]

NARRATIVE: CASE EVENT DATE: 202103
